FAERS Safety Report 5866278-2 (Version None)
Quarter: 2008Q3

REPORT INFORMATION
  Report Type: 
  Country: None (occurrence: None)
  Receive Date: 20080829
  Receipt Date: 20080823
  Transmission Date: 20090109
  Serious: Yes (Other)
  Sender: FDA-Public Use
  Company Number: US-PFIZER INC-2008071196

PATIENT
  Sex: Male
  Weight: 95 kg

DRUGS (1)
  1. CHANTIX [Suspect]
     Indication: SMOKING CESSATION THERAPY
     Dates: start: 20080101, end: 20080101

REACTIONS (8)
  - ABNORMAL DREAMS [None]
  - ALCOHOL USE [None]
  - ANXIETY [None]
  - FEELING OF DESPAIR [None]
  - INCOHERENT [None]
  - INSOMNIA [None]
  - SUICIDAL IDEATION [None]
  - VIOLENCE-RELATED SYMPTOM [None]
